FAERS Safety Report 19827500 (Version 2)
Quarter: 2023Q4

REPORT INFORMATION
  Report Type: Spontaneous
  Country: US (occurrence: US)
  Receive Date: 20210914
  Receipt Date: 20231102
  Transmission Date: 20240110
  Serious: Yes (Other)
  Sender: FDA-Public Use
  Company Number: US-COOPERSURGICAL, INC.-US-2021CPS002710

PATIENT
  Age: 24 Year
  Sex: Female
  Weight: 104.31 kg

DRUGS (1)
  1. PARAGARD T 380A [Suspect]
     Active Substance: COPPER
     Indication: Contraception
     Dosage: UNK
     Route: 015
     Dates: start: 20131011

REACTIONS (17)
  - Ovarian cyst [Unknown]
  - Polycystic ovaries [Unknown]
  - Suicidal ideation [Unknown]
  - Endometritis [Unknown]
  - Hydrometra [Unknown]
  - Device breakage [Not Recovered/Not Resolved]
  - Foreign body in reproductive tract [Not Recovered/Not Resolved]
  - Complication of device removal [Not Recovered/Not Resolved]
  - Cervical polyp [Recovered/Resolved]
  - Anxiety [Not Recovered/Not Resolved]
  - Intertrigo [Unknown]
  - Emotional distress [Unknown]
  - Reproductive complication associated with device [Not Recovered/Not Resolved]
  - Depression [Unknown]
  - Procedural haemorrhage [Recovered/Resolved]
  - Otitis externa [Unknown]
  - Rash [Unknown]

NARRATIVE: CASE EVENT DATE: 20201221
